FAERS Safety Report 24997122 (Version 1)
Quarter: 2025Q1

REPORT INFORMATION
  Report Type: Spontaneous
  Country: US (occurrence: US)
  Receive Date: 20250221
  Receipt Date: 20250221
  Transmission Date: 20250409
  Serious: Yes (Life-Threatening, Hospitalization, Other)
  Sender: LP PHARMACEUTICALS INC
  Company Number: US-LP Pharmaceuticals Inc -2171552

PATIENT
  Age: 84 Year
  Sex: Female

DRUGS (2)
  1. MEMANTINE HYDROCHLORIDE [Suspect]
     Active Substance: MEMANTINE HYDROCHLORIDE
     Indication: Dementia
  2. AMLODIPINE [Concomitant]
     Active Substance: AMLODIPINE BESYLATE

REACTIONS (5)
  - Electrocardiogram QT prolonged [Unknown]
  - Off label use [Unknown]
  - Cardiac arrest [Unknown]
  - Torsade de pointes [Unknown]
  - Ventricular extrasystoles [Unknown]
